FAERS Safety Report 8574431-2 (Version None)
Quarter: 2012Q3

REPORT INFORMATION
  Report Type: 
  Country: None (occurrence: None)
  Receive Date: 20120806
  Receipt Date: 20120730
  Transmission Date: 20120928
  Serious: Yes (Other)
  Sender: FDA-Public Use
  Company Number: JP-ABBOTT-12P-087-0964018-00

PATIENT
  Age: 59 Year
  Sex: Male

DRUGS (2)
  1. AMLODIPINE [Concomitant]
     Indication: HYPERTENSION
  2. CLARITHROMYCIN [Suspect]
     Indication: SINUSITIS
     Route: 048

REACTIONS (2)
  - LOSS OF CONSCIOUSNESS [None]
  - DRUG INTERACTION [None]
